FAERS Safety Report 12666217 (Version 3)
Quarter: 2017Q2

REPORT INFORMATION
  Report Type: Spontaneous
  Country: US (occurrence: US)
  Receive Date: 20160818
  Receipt Date: 20170524
  Transmission Date: 20170830
  Serious: No
  Sender: FDA-Public Use
  Company Number: US-JAZZ-2016-US-005866

PATIENT
  Sex: Male

DRUGS (12)
  1. GLIMEPIRIDE. [Concomitant]
     Active Substance: GLIMEPIRIDE
  2. XYREM [Suspect]
     Active Substance: SODIUM OXYBATE
     Indication: SLEEP DISORDER
     Dosage: 2.25 G, BID
     Route: 048
     Dates: start: 200310, end: 2003
  3. XYREM [Suspect]
     Active Substance: SODIUM OXYBATE
     Dosage: 6 G, BID
     Route: 048
     Dates: start: 200609
  4. ACTOS [Concomitant]
     Active Substance: PIOGLITAZONE HYDROCHLORIDE
  5. FLECTOR [Concomitant]
     Active Substance: DICLOFENAC EPOLAMINE
  6. LIPITOR [Concomitant]
     Active Substance: ATORVASTATIN CALCIUM
  7. STARLIX [Concomitant]
     Active Substance: NATEGLINIDE
  8. RABEPRAZOLE [Suspect]
     Active Substance: RABEPRAZOLE
     Indication: PRODUCT USED FOR UNKNOWN INDICATION
     Dosage: UNK
     Dates: start: 2013
  9. OXYCODONE AND ACETAMINOPHEN [Concomitant]
     Active Substance: ACETAMINOPHEN\OXYCODONE HYDROCHLORIDE
  10. NEURONTIN [Concomitant]
     Active Substance: GABAPENTIN
  11. XYREM [Suspect]
     Active Substance: SODIUM OXYBATE
     Dosage: DOSE ADJUSTMENTS
     Route: 048
  12. KLONOPIN [Concomitant]
     Active Substance: CLONAZEPAM

REACTIONS (2)
  - Malaise [Unknown]
  - Abdominal pain upper [Not Recovered/Not Resolved]
